FAERS Safety Report 9071868 (Version 1)
Quarter: 2013Q1

REPORT INFORMATION
  Report Type: Report from Study
  Country: US (occurrence: US)
  Receive Date: 20130129
  Receipt Date: 20130129
  Transmission Date: 20140127
  Serious: No
  Sender: FDA-Public Use
  Company Number: US-ABBOTT-12P-163-0932349-00

PATIENT
  Age: 51 Year
  Sex: Female

DRUGS (4)
  1. HUMIRA 40 MG/0.8 ML PEN [Suspect]
     Indication: PSORIASIS
     Dates: start: 20120416, end: 20120416
  2. HUMIRA 40 MG/0.8 ML PEN [Suspect]
     Dates: start: 20120423
  3. ATENOLOL [Concomitant]
     Indication: BLOOD PRESSURE
     Dosage: 10 MG EVERY DAY
  4. IRON INFUSIONS [Concomitant]
     Indication: ANAEMIA
     Dosage: ONCE A YEAR

REACTIONS (4)
  - Injection site pain [Recovering/Resolving]
  - Injection site pain [Recovering/Resolving]
  - Nervousness [Unknown]
  - Tension [Unknown]
